FAERS Safety Report 15413240 (Version 1)
Quarter: 2018Q3

REPORT INFORMATION
  Report Type: Spontaneous
  Country: CN (occurrence: CN)
  Receive Date: 20180921
  Receipt Date: 20180921
  Transmission Date: 20181010
  Serious: Yes (Other)
  Sender: FDA-Public Use
  Company Number: CN-PFIZER INC-2018376145

PATIENT
  Age: 73 Year
  Sex: Female

DRUGS (6)
  1. MEDROL [Suspect]
     Active Substance: METHYLPREDNISOLONE
     Dosage: ADDED TO 1.5 TABLETS
     Route: 048
  2. XELJANZ [Suspect]
     Active Substance: TOFACITINIB CITRATE
     Indication: RHEUMATOID ARTHRITIS
     Dosage: UNK, 2X/DAY
     Route: 048
     Dates: start: 20180916
  3. MEDROL [Suspect]
     Active Substance: METHYLPREDNISOLONE
     Dosage: DECREASED TO 1.5 TABLETS
     Route: 048
     Dates: start: 2012, end: 20180915
  4. MEDROL [Suspect]
     Active Substance: METHYLPREDNISOLONE
     Indication: RHEUMATOID ARTHRITIS
     Dosage: ONE TABLET
     Route: 048
     Dates: start: 2009
  5. LEFLUNOMIDE. [Concomitant]
     Active Substance: LEFLUNOMIDE
     Dosage: UNK
  6. MEDROL [Suspect]
     Active Substance: METHYLPREDNISOLONE
     Dosage: ADDED TO THREE TABLETS
     Route: 048

REACTIONS (8)
  - Arthralgia [Unknown]
  - Cataract [Recovered/Resolved]
  - Noninfective gingivitis [Not Recovered/Not Resolved]
  - Drug ineffective [Unknown]
  - Auditory disorder [Unknown]
  - Pharyngitis [Not Recovered/Not Resolved]
  - Laryngeal atrophy [Not Recovered/Not Resolved]
  - Muscular weakness [Not Recovered/Not Resolved]

NARRATIVE: CASE EVENT DATE: 201602
